FAERS Safety Report 4530310-9 (Version None)
Quarter: 2004Q4

REPORT INFORMATION
  Report Type: 
  Country: None (occurrence: None)
  Receive Date: 20041215
  Receipt Date: 20041206
  Transmission Date: 20050328
  Serious: Yes (Life-Threatening, Hospitalization, Other)
  Sender: FDA-Public Use
  Company Number: 2004004204

PATIENT
  Age: 47 Year
  Sex: Female
  Weight: 72 kg

DRUGS (11)
  1. TAHOR (ATORVASTATIN) [Suspect]
     Indication: HYPERCHOLESTEROLAEMIA
     Dosage: 20 MG (1 IN 1 D), ORAL
     Route: 048
     Dates: start: 20021001, end: 20040701
  2. FENOFIBRATE [Suspect]
     Indication: HYPERCHOLESTEROLAEMIA
     Dosage: 160 MG (1 IN 1 D), ORAL
     Route: 048
     Dates: start: 19640101, end: 20040701
  3. PRAVASTATIN [Suspect]
     Indication: HYPERCHOLESTEROLAEMIA
     Dosage: ORAL
     Route: 048
     Dates: start: 19800101
  4. SIMVASTATIN [Suspect]
     Indication: HYPERCHOLESTEROLAEMIA
     Dosage: ORAL
     Route: 048
     Dates: start: 19800101
  5. CELECOXIB (CELECOXIB) [Concomitant]
  6. ESOMEPRAZOLE (ESOMEPRAZOLE) [Concomitant]
  7. CEFTRIAXONE [Concomitant]
  8. LEVOTHYROXINE SODIUM [Concomitant]
  9. DOMPERIDONE (DOMPERIDONE) [Concomitant]
  10. OMEPRAZOLE [Concomitant]
  11. ALPRAZOLAM [Concomitant]

REACTIONS (10)
  - BRONCHITIS [None]
  - CHOLESTASIS [None]
  - DRUG TOXICITY [None]
  - FEELING ABNORMAL [None]
  - GASTROINTESTINAL DISORDER [None]
  - GASTROINTESTINAL HAEMORRHAGE [None]
  - GASTROOESOPHAGEAL REFLUX DISEASE [None]
  - HEPATITIS [None]
  - PANCREATITIS NECROTISING [None]
  - ULCER [None]
